FAERS Safety Report 16135065 (Version 1)
Quarter: 2019Q1

REPORT INFORMATION
  Report Type: Spontaneous
  Country: US (occurrence: US)
  Receive Date: 20190329
  Receipt Date: 20190329
  Transmission Date: 20190418
  Serious: Yes (Other)
  Sender: FDA-Public Use
  Company Number: US-TEVA-2019-US-1029463

PATIENT

DRUGS (1)
  1. KETOROLAC TROMETHAMINE TABLETS [Suspect]
     Active Substance: KETOROLAC TROMETHAMINE

REACTIONS (2)
  - Blood cannabinoids increased [Unknown]
  - Drug screen positive [Unknown]

NARRATIVE: CASE EVENT DATE: 20190315
